FAERS Safety Report 10238989 (Version 1)
Quarter: 2014Q2

REPORT INFORMATION
  Report Type: Spontaneous
  Country: US (occurrence: None)
  Receive Date: 20140613
  Receipt Date: 20140613
  Transmission Date: 20141212
  Serious: Yes (Disabling)
  Sender: FDA-Public Use
  Company Number: None

PATIENT
  Age: 70 Year
  Sex: Male
  Weight: 99.79 kg

DRUGS (1)
  1. DORZOL/TIMOLOL [Suspect]
     Indication: OPEN ANGLE GLAUCOMA
     Dosage: 1 DROP EA. EYE 2X^S A DAY TWICE DAILY INTO THE EYE 3 MONTHS
     Route: 047

REACTIONS (3)
  - Muscle atrophy [None]
  - Decreased activity [None]
  - Fatigue [None]
